FAERS Safety Report 21843623 (Version 2)
Quarter: 2024Q1

REPORT INFORMATION
  Report Type: Report from Study
  Country: US (occurrence: US)
  Receive Date: 20230110
  Receipt Date: 20240311
  Transmission Date: 20240410
  Serious: Yes (Other)
  Sender: FDA-Public Use
  Company Number: US-ABBVIE-4263572

PATIENT
  Sex: Male

DRUGS (2)
  1. IMBRUVICA [Suspect]
     Active Substance: IBRUTINIB
     Indication: Chronic lymphocytic leukaemia
     Dosage: LAST ADMIN DATE- 2022
     Route: 048
     Dates: start: 20221122
  2. IMBRUVICA [Suspect]
     Active Substance: IBRUTINIB
     Indication: Chronic lymphocytic leukaemia
     Dosage: TIME INTERVAL: 0.33333333 DAYS: FIRST ADMIN DATE- 2022
     Route: 048
     Dates: end: 20221226

REACTIONS (4)
  - Pharyngeal haemorrhage [Unknown]
  - White blood cell count decreased [Unknown]
  - Epistaxis [Unknown]
  - Laboratory test abnormal [Unknown]
